FAERS Safety Report 19702673 (Version 2)
Quarter: 2022Q1

REPORT INFORMATION
  Report Type: Spontaneous
  Country: JP (occurrence: JP)
  Receive Date: 20210815
  Receipt Date: 20220113
  Transmission Date: 20220423
  Serious: Yes (Other)
  Sender: FDA-Public Use
  Company Number: JP-JNJFOC-20210812135

PATIENT
  Age: 22 Day
  Sex: Female
  Weight: 3.39 kg

DRUGS (2)
  1. TRACLEER [Suspect]
     Active Substance: BOSENTAN
     Indication: Newborn persistent pulmonary hypertension
     Dosage: BOSENTAN HYDRATE:62.5MG
     Route: 050
     Dates: start: 20201102, end: 20201108
  2. REVATIO [Suspect]
     Active Substance: SILDENAFIL CITRATE
     Indication: Newborn persistent pulmonary hypertension
     Route: 050
     Dates: start: 20201102

REACTIONS (4)
  - Cardiac failure congestive [Recovered/Resolved]
  - Pulmonary hypertension [Recovered/Resolved]
  - Product use issue [Unknown]
  - Off label use [Unknown]

NARRATIVE: CASE EVENT DATE: 20201102
